FAERS Safety Report 19457578 (Version 1)
Quarter: 2021Q2

REPORT INFORMATION
  Report Type: Spontaneous
  Country: NL (occurrence: NL)
  Receive Date: 20210624
  Receipt Date: 20210624
  Transmission Date: 20210717
  Serious: Yes (Other)
  Sender: FDA-Public Use
  Company Number: NL-SUN PHARMACEUTICAL INDUSTRIES LTD-2021RR-301856

PATIENT
  Age: 66 Year
  Sex: Male
  Weight: 85 kg

DRUGS (6)
  1. LERCANIDIPINE TABLET OMHULD 20MG / BRAND NAME NOT SPECIFIEDLERCANID... [Concomitant]
     Indication: PRODUCT USED FOR UNKNOWN INDICATION
     Dosage: UNK, COATED TABLET, 20 MG (MILLIGRAMS)
     Route: 065
  2. SIMVASTATINE TABLET FO 20MG / BRAND NAME NOT SPECIFIEDSIMVASTATINE ... [Concomitant]
     Indication: PRODUCT USED FOR UNKNOWN INDICATION
     Dosage: UNK, FILM?COATED TABLET, 20 MG (MILLIGRAMS)
     Route: 065
  3. LISINOPRIL/HYDROCHLOORTHIAZIDE TABLET 20/12,5MG / BRAND NAME NOT SP... [Concomitant]
     Indication: PRODUCT USED FOR UNKNOWN INDICATION
     Dosage: UNK, TABLET, 20/12.5 MG (MILLIGRAMS)
     Route: 065
  4. PANTOPRAZOL [Suspect]
     Active Substance: PANTOPRAZOLE SODIUM
     Indication: OESOPHAGEAL ULCER
     Dosage: 40 MILLIGRAM, BID, 2X DAILY 40 MG
     Route: 065
     Dates: start: 20210224
  5. CARBASALAATCALCIUM POEDER 100MG / BRAND NAME NOT SPECIFIEDCARBASALA... [Concomitant]
     Indication: PRODUCT USED FOR UNKNOWN INDICATION
     Dosage: UNK, SACHET (POWDER), 100 MG (MILLIGRAMS)
     Route: 065
  6. COVID?19 VACCIN PFIZER INJVLST / BRAND NAME NOT SPECIFIEDCOVID?19 V... [Concomitant]
     Indication: PRODUCT USED FOR UNKNOWN INDICATION
     Dosage: UNK, INJECTION FLUID
     Route: 065

REACTIONS (3)
  - Aggression [Recovering/Resolving]
  - Sleep disorder [Recovering/Resolving]
  - Hallucination [Recovering/Resolving]

NARRATIVE: CASE EVENT DATE: 20210324
